FAERS Safety Report 5188621-2 (Version None)
Quarter: 2006Q4

REPORT INFORMATION
  Report Type: 
  Country: None (occurrence: None)
  Receive Date: 20061214
  Receipt Date: 20061205
  Transmission Date: 20070319
  Serious: Yes (Other)
  Sender: FDA-Public Use
  Company Number: 2005098231

PATIENT
  Age: 83 Year
  Sex: Female
  Weight: 69.8539 kg

DRUGS (8)
  1. DETROL LA [Suspect]
     Indication: BLADDER DISORDER
     Dosage: 4 MG (4 MG, 1 IN 1 D), ORAL
     Route: 048
     Dates: start: 20030101, end: 20060222
  2. NORVASC [Suspect]
     Indication: CHEST PAIN
     Dosage: 5 MG (5 MG, 1 IN 1 D), ORAL
     Route: 048
  3. FOSAMAX [Suspect]
     Indication: OSTEOPENIA
     Dosage: 70 MG (70 MG, 1 IN 7 D), ORAL
     Route: 048
  4. ZOCOR [Concomitant]
  5. NADOLOL [Concomitant]
  6. TRICOR [Concomitant]
  7. ATIVAN [Concomitant]
  8. CLARINEX [Concomitant]

REACTIONS (25)
  - ACUTE SINUSITIS [None]
  - ANOREXIA [None]
  - BLADDER CYST [None]
  - BLADDER DISORDER [None]
  - CHEST PAIN [None]
  - CHRONIC SINUSITIS [None]
  - DRY MOUTH [None]
  - EYE DISORDER [None]
  - EYE INFECTION [None]
  - HYPERSENSITIVITY [None]
  - MENTAL DISORDER [None]
  - MOUTH ULCERATION [None]
  - NASOPHARYNGITIS [None]
  - PAIN [None]
  - PAPILLOMA [None]
  - PHARYNGEAL ULCERATION [None]
  - PRODUCTIVE COUGH [None]
  - PURULENCE [None]
  - RETCHING [None]
  - SINUS DISORDER [None]
  - SINUSITIS [None]
  - TREATMENT NONCOMPLIANCE [None]
  - URETERAL POLYP [None]
  - URINARY BLADDER POLYP [None]
  - WEIGHT DECREASED [None]
